FAERS Safety Report 24810405 (Version 1)
Quarter: 2025Q1

REPORT INFORMATION
  Report Type: Spontaneous
  Country: FR (occurrence: FR)
  Receive Date: 20250106
  Receipt Date: 20250106
  Transmission Date: 20250409
  Serious: Yes (Other)
  Sender: PFIZER
  Company Number: FR-ADVANZ PHARMA-202412010449

PATIENT
  Sex: Male

DRUGS (3)
  1. ALPROSTADIL [Suspect]
     Active Substance: ALPROSTADIL
  2. EDEX [Suspect]
     Active Substance: ALPROSTADIL
     Route: 017
  3. PREGABALIN [Concomitant]
     Active Substance: PREGABALIN

REACTIONS (1)
  - Drug abuse [Unknown]
